FAERS Safety Report 4993388-4 (Version None)
Quarter: 2006Q2

REPORT INFORMATION
  Report Type: 
  Country: None (occurrence: None)
  Receive Date: 20060505
  Receipt Date: 20060424
  Transmission Date: 20061013
  Serious: Yes (Death, Hospitalization)
  Sender: FDA-Public Use
  Company Number: US-AVENTIS-200613855US

PATIENT
  Sex: Female

DRUGS (4)
  1. KETEK [Suspect]
     Indication: BRONCHITIS
     Route: 048
     Dates: start: 20050401, end: 20050401
  2. PACERONE [Suspect]
     Dosage: DOSE: UNK
  3. FUROSEMIDE [Concomitant]
     Dosage: DOSE: UNK
  4. UNKNOWN DRUG [Concomitant]
     Dosage: DOSE: UNK

REACTIONS (9)
  - BLOOD GLUCOSE DECREASED [None]
  - CARDIAC FAILURE [None]
  - CATHETER RELATED INFECTION [None]
  - CEREBROVASCULAR ACCIDENT [None]
  - DIALYSIS [None]
  - HYPOTENSION [None]
  - LOSS OF CONSCIOUSNESS [None]
  - RENAL IMPAIRMENT [None]
  - URINARY TRACT INFECTION [None]
